FAERS Safety Report 23102479 (Version 8)
Quarter: 2024Q4

REPORT INFORMATION
  Report Type: Report from Study
  Country: US (occurrence: US)
  Receive Date: 20231025
  Receipt Date: 20241001
  Transmission Date: 20250114
  Serious: No
  Sender: DECIPHERA PHARMACEUTICALS
  Company Number: US-DECIPHERA PHARMACEUTICALS LLC-2023US000937

PATIENT
  Age: 67 Year
  Sex: Male

DRUGS (4)
  1. QINLOCK [Suspect]
     Active Substance: RIPRETINIB
     Indication: Gastrointestinal stromal tumour
     Dosage: 150 MILLIGRAM, QD
     Route: 048
     Dates: start: 20220924
  2. QINLOCK [Suspect]
     Active Substance: RIPRETINIB
     Dosage: 150 MILLIGRAM, QD
     Route: 048
  3. QINLOCK [Suspect]
     Active Substance: RIPRETINIB
     Dosage: 150 MILLIGRAM, QD
     Route: 048
  4. QINLOCK [Suspect]
     Active Substance: RIPRETINIB
     Dosage: 150 MILLIGRAM, QD (SOMETIMES TAKE EXTRA DUE TO FORGETTING THE DOSE)
     Route: 048

REACTIONS (25)
  - Pigmentation disorder [Unknown]
  - Hypoaesthesia [Unknown]
  - Tumour pain [Not Recovered/Not Resolved]
  - Pain in extremity [Unknown]
  - Computerised tomogram abnormal [Unknown]
  - Blood pressure diastolic decreased [Unknown]
  - Tooth loss [Unknown]
  - Teeth brittle [Unknown]
  - Feeding disorder [Unknown]
  - Dizziness [Unknown]
  - Fall [Unknown]
  - Injection site bruising [Unknown]
  - Injection site pain [Recovered/Resolved]
  - Prostatic disorder [Unknown]
  - Malaise [Unknown]
  - Pain [Not Recovered/Not Resolved]
  - Nasopharyngitis [Unknown]
  - Anaemia [Unknown]
  - Nausea [Unknown]
  - Weight decreased [Unknown]
  - Vomiting [Unknown]
  - Abdominal pain [Not Recovered/Not Resolved]
  - Product dose omission issue [Unknown]
  - Drug ineffective [Unknown]
  - Extra dose administered [Unknown]

NARRATIVE: CASE EVENT DATE: 20231008
